FAERS Safety Report 8340412-7 (Version None)
Quarter: 2012Q2

REPORT INFORMATION
  Report Type: 
  Country: None (occurrence: None)
  Receive Date: 20120507
  Receipt Date: 20120507
  Transmission Date: 20120825
  Serious: Yes (Hospitalization, Disabling, Other)
  Sender: FDA-Public Use
  Company Number: None

PATIENT
  Age: 66 Year
  Sex: Female
  Weight: 71.214 kg

DRUGS (1)
  1. CRESTOR [Suspect]
     Indication: BLOOD CHOLESTEROL INCREASED
     Dosage: |DOSAGETEXT: 80 MG||STRENGTH: 80 MG||FREQ: ONE DAILY|
     Dates: start: 20000101, end: 20000601

REACTIONS (7)
  - PAIN [None]
  - HYPOAESTHESIA [None]
  - DYSSTASIA [None]
  - ABASIA [None]
  - HYPERTENSION [None]
  - MOVEMENT DISORDER [None]
  - ACTIVITIES OF DAILY LIVING IMPAIRED [None]
